FAERS Safety Report 16643381 (Version 1)
Quarter: 2019Q3

REPORT INFORMATION
  Report Type: Spontaneous
  Country: US (occurrence: US)
  Receive Date: 20190729
  Receipt Date: 20190729
  Transmission Date: 20191004
  Serious: No
  Sender: FDA-Public Use
  Company Number: US-JNJFOC-20190721922

PATIENT
  Sex: Male

DRUGS (1)
  1. INVEGA [Suspect]
     Active Substance: PALIPERIDONE
     Indication: SCHIZOAFFECTIVE DISORDER
     Route: 048
     Dates: start: 201509, end: 201702

REACTIONS (4)
  - Gynaecomastia [Unknown]
  - Glucose tolerance impaired [Unknown]
  - Galactorrhoea [Unknown]
  - Weight increased [Unknown]
